FAERS Safety Report 4517667-X (Version None)
Quarter: 2004Q4

REPORT INFORMATION
  Report Type: 
  Country: None (occurrence: None)
  Receive Date: 20041203
  Receipt Date: 20041123
  Transmission Date: 20050328
  Serious: Yes (Hospitalization)
  Sender: FDA-Public Use
  Company Number: US-JNJFOC-20040504167

PATIENT
  Age: 54 Year
  Sex: Female
  Weight: 72.58 kg

DRUGS (4)
  1. TOPAMAX [Suspect]
     Route: 049
  2. TOPAMAX [Suspect]
     Indication: SCHIZOPHRENIA
     Route: 049
  3. MANY MEDICATIONS [Concomitant]
  4. HRT [Concomitant]

REACTIONS (6)
  - FATIGUE [None]
  - FEELING ABNORMAL [None]
  - OVARIAN CYST [None]
  - POSTMENOPAUSAL HAEMORRHAGE [None]
  - URETHRAL HAEMORRHAGE [None]
  - UTERINE POLYP [None]
